FAERS Safety Report 11659431 (Version 3)
Quarter: 2015Q4

REPORT INFORMATION
  Report Type: Spontaneous
  Country: FR (occurrence: FR)
  Receive Date: 20151026
  Receipt Date: 20151201
  Transmission Date: 20160304
  Serious: Yes (Hospitalization)
  Sender: FDA-Public Use
  Company Number: FR-PFIZER INC-2015357615

PATIENT
  Age: 58 Year
  Sex: Male

DRUGS (9)
  1. IBUPROFEN. [Suspect]
     Active Substance: IBUPROFEN
     Indication: GENERAL PHYSICAL HEALTH DETERIORATION
     Dosage: UNK
     Route: 048
     Dates: start: 20150928, end: 20151001
  2. IMETH [Suspect]
     Active Substance: METHOTREXATE SODIUM
     Indication: RHEUMATIC DISORDER
     Dosage: 10 MG, WEEKLY
     Route: 048
     Dates: end: 20151007
  3. PYOSTACINE [Suspect]
     Active Substance: PRISTINAMYCIN
     Indication: AURICULAR SWELLING
  4. PYOSTACINE [Suspect]
     Active Substance: PRISTINAMYCIN
     Indication: GENERAL PHYSICAL HEALTH DETERIORATION
     Dosage: UNK
     Route: 048
     Dates: start: 20150928, end: 20151002
  5. LIPANTHYL [Concomitant]
     Active Substance: FENOFIBRATE
     Dosage: 140 MG, 1X/DAY
  6. FLECAINE [Concomitant]
     Active Substance: FLECAINIDE
     Dosage: 100 MG, 1X/DAY
  7. IBUPROFEN. [Suspect]
     Active Substance: IBUPROFEN
     Indication: AURICULAR SWELLING
  8. COOLMETEC [Concomitant]
     Active Substance: HYDROCHLOROTHIAZIDE\OLMESARTAN MEDOXOMIL
     Dosage: 1 TABLET DAILY
  9. LERCANIDIPINE HCL [Concomitant]
     Active Substance: LERCANIDIPINE HYDROCHLORIDE
     Dosage: 10 MG, 1X/DAY

REACTIONS (6)
  - Acute kidney injury [Recovered/Resolved]
  - Dehydration [Recovered/Resolved]
  - Arthralgia [Unknown]
  - Toxoplasmosis [Recovered/Resolved]
  - Neutropenia [Recovered/Resolved]
  - Prostatitis Escherichia coli [Recovered/Resolved]

NARRATIVE: CASE EVENT DATE: 201509
